FAERS Safety Report 16185025 (Version 1)
Quarter: 2019Q2

REPORT INFORMATION
  Report Type: Spontaneous
  Country: US (occurrence: US)
  Receive Date: 20190308
  Receipt Date: 20190308
  Transmission Date: 20190711
  Serious: Yes (Life-Threatening)
  Sender: FDA-Public Use
  Company Number: None

PATIENT
  Age: 67 Year
  Sex: Female
  Weight: 52.62 kg

DRUGS (5)
  1. RALOXIFENE. [Suspect]
     Active Substance: RALOXIFENE
     Indication: FEMUR FRACTURE
     Dosage: ?          QUANTITY:60 MG MILLIGRAM(S);?
     Route: 048
     Dates: start: 20180424, end: 20190224
  2. DULOXETINE. [Concomitant]
     Active Substance: DULOXETINE
  3. BISOPROLOL [Concomitant]
     Active Substance: BISOPROLOL
  4. XARELTO [Concomitant]
     Active Substance: RIVAROXABAN
  5. EZETIMIB/SIMVASTAT [Concomitant]

REACTIONS (5)
  - Peripheral swelling [None]
  - Pain in extremity [None]
  - Erythema [None]
  - Arthralgia [None]
  - Joint swelling [None]

NARRATIVE: CASE EVENT DATE: 20190224
